FAERS Safety Report 6213930-5 (Version None)
Quarter: 2009Q2

REPORT INFORMATION
  Report Type: 
  Country: None (occurrence: None)
  Receive Date: 20090601
  Receipt Date: 20090601
  Transmission Date: 20091009
  Serious: Yes (Other)
  Sender: FDA-Public Use
  Company Number: None

PATIENT
  Age: 25 Year
  Sex: Female
  Weight: 47.6277 kg

DRUGS (1)
  1. SYNTHROID [Suspect]
     Dates: start: 19850101, end: 20070101

REACTIONS (7)
  - BLOOD THYROID STIMULATING HORMONE ABNORMAL [None]
  - DEPRESSION [None]
  - DRUG INEFFECTIVE [None]
  - HAIR TEXTURE ABNORMAL [None]
  - ONYCHOCLASIS [None]
  - PRODUCT SUBSTITUTION ISSUE [None]
  - TEMPERATURE INTOLERANCE [None]
